FAERS Safety Report 11718326 (Version 1)
Quarter: 2015Q4

REPORT INFORMATION
  Report Type: Spontaneous
  Country: CN (occurrence: CN)
  Receive Date: 20151110
  Receipt Date: 20151110
  Transmission Date: 20160304
  Serious: Yes (Hospitalization)
  Sender: FDA-Public Use
  Company Number: CN-ASTRAZENECA-2015SF07925

PATIENT
  Age: 72 Year
  Sex: Female
  Weight: 45 kg

DRUGS (6)
  1. PLENDIL [Suspect]
     Active Substance: FELODIPINE
     Route: 048
  2. BETALOC [Suspect]
     Active Substance: METOPROLOL TARTRATE
     Route: 048
  3. BAYASPIRIN [Concomitant]
     Active Substance: ASPIRIN
  4. PLENDIL [Suspect]
     Active Substance: FELODIPINE
     Route: 048
  5. MICARDIS [Concomitant]
     Active Substance: TELMISARTAN
  6. ATORVASTATIN CALCIUM. [Concomitant]
     Active Substance: ATORVASTATIN CALCIUM

REACTIONS (4)
  - Pyrexia [Unknown]
  - Blood pressure fluctuation [Unknown]
  - Nasopharyngitis [Unknown]
  - Dizziness [Unknown]
